FAERS Safety Report 7660418-0 (Version None)
Quarter: 2011Q3

REPORT INFORMATION
  Report Type: 
  Country: None (occurrence: None)
  Receive Date: 20110805
  Receipt Date: 20110722
  Transmission Date: 20111222
  Serious: Yes (Other)
  Sender: FDA-Public Use
  Company Number: US-WATSON-2011-11432

PATIENT
  Age: 48 Year
  Sex: Female
  Weight: 52.608 kg

DRUGS (2)
  1. PRIMIDONE [Suspect]
     Indication: CONVULSION
     Dosage: 250 MG TWO TIMES A DAY
     Route: 048
     Dates: start: 19560101
  2. DILANTIN [Suspect]
     Indication: CONVULSION
     Dosage: 100 MG TWO TIMES A DAY
     Route: 048
     Dates: start: 19480101

REACTIONS (8)
  - STEVENS-JOHNSON SYNDROME [None]
  - C-REACTIVE PROTEIN ABNORMAL [None]
  - BONE DISORDER [None]
  - AUTOIMMUNE DISORDER [None]
  - POLYARTHRITIS [None]
  - ANTIBODY TEST ABNORMAL [None]
  - RED BLOOD CELL SEDIMENTATION RATE INCREASED [None]
  - BLOOD CREATINE INCREASED [None]
